FAERS Safety Report 5678607-3 (Version None)
Quarter: 2008Q1

REPORT INFORMATION
  Report Type: 
  Country: None (occurrence: None)
  Receive Date: 20080325
  Receipt Date: 20080314
  Transmission Date: 20080703
  Serious: Yes (Death)
  Sender: FDA-Public Use
  Company Number: ES-WYE-G01250708

PATIENT
  Sex: Male

DRUGS (1)
  1. TIGECYCLINE [Suspect]
     Indication: PNEUMONIA
     Dosage: UNKNOWN
     Route: 042

REACTIONS (1)
  - DEATH [None]
